FAERS Safety Report 5163226-8 (Version None)
Quarter: 2006Q4

REPORT INFORMATION
  Report Type: 
  Country: None (occurrence: None)
  Receive Date: 20061204
  Receipt Date: 20060302
  Transmission Date: 20070319
  Serious: Yes (Other)
  Sender: FDA-Public Use
  Company Number: US-ELI_LILLY_AND_COMPANY-US200605004177

PATIENT
  Age: 48 Year
  Sex: Male
  Weight: 80.725 kg

DRUGS (1)
  1. ZYPREXA [Suspect]
     Dosage: 10 MG, UNK
     Dates: start: 20021125

REACTIONS (2)
  - DIABETES MELLITUS [None]
  - HEPATITIS VIRAL [None]
